FAERS Safety Report 5313296-9 (Version None)
Quarter: 2007Q2

REPORT INFORMATION
  Report Type: 
  Country: None (occurrence: None)
  Receive Date: 20070501
  Receipt Date: 20070420
  Transmission Date: 20071010
  Serious: Yes (Hospitalization, Other)
  Sender: FDA-Public Use
  Company Number: PHFR2007GB00917

PATIENT
  Age: 82 Year
  Sex: Female

DRUGS (14)
  1. CLOZARIL [Suspect]
     Indication: SCHIZOPHRENIA
     Dosage: 125MG/DAY
     Route: 048
     Dates: start: 20060328
  2. CLOZARIL [Suspect]
     Dosage: 100MG/DAY
     Route: 048
  3. FLUDROCORTISONE ACETATE [Concomitant]
     Indication: DIZZINESS
     Dosage: 0.1MG/DAY
     Route: 048
     Dates: start: 20070301
  4. LEVOTHYROXINE SODIUM [Concomitant]
     Indication: THYROID DISORDER
     Dosage: 100UG/DAY
     Route: 048
  5. OMEPRAZOLE [Concomitant]
     Dosage: 10MG/DAY
     Route: 048
  6. TRAMADOL HCL [Concomitant]
     Indication: PAIN
     Dosage: 50MG/DAY
     Route: 048
  7. PREDNISOLONE [Concomitant]
     Indication: FIBROMYALGIA
     Dosage: 2.5MG/DAY
     Route: 048
  8. RISEDRONATE SODIUM [Concomitant]
     Indication: OSTEOPOROSIS
     Dosage: 35 MG, QW
     Route: 048
  9. SENNA [Concomitant]
     Indication: CONSTIPATION
     Dosage: PRN
     Route: 048
  10. LACTULOSE [Concomitant]
     Indication: CONSTIPATION
     Dosage: PRN
     Route: 048
  11. VENTOLIN [Concomitant]
     Dosage: 2 DF, PRN
  12. ADCAL-D3 [Concomitant]
     Dosage: 1 DF, QD
     Route: 048
  13. PARACETAMOL [Concomitant]
     Indication: PAIN
     Dosage: 2 DF, QID
     Route: 048
  14. TEMAZEPAM [Concomitant]
     Indication: INSOMNIA
     Dosage: 10MG NOCTE
     Route: 048

REACTIONS (6)
  - DIZZINESS [None]
  - EAR INFECTION [None]
  - FALL [None]
  - GENERAL PHYSICAL HEALTH DETERIORATION [None]
  - ORTHOSTATIC HYPOTENSION [None]
  - VERTIGO [None]
